FAERS Safety Report 10408852 (Version 1)
Quarter: 2014Q3

REPORT INFORMATION
  Report Type: Spontaneous
  Country: US (occurrence: None)
  Receive Date: 20140822
  Receipt Date: 20140822
  Transmission Date: 20150326
  Serious: Yes (Other)
  Sender: FDA-Public Use
  Company Number: ADR-2014-01474

PATIENT
  Age: 2 Year
  Sex: Male

DRUGS (1)
  1. LIORESAL [Suspect]
     Active Substance: BACLOFEN
     Indication: MUSCLE SPASMS
     Dosage: 10 MG X 60

REACTIONS (6)
  - Brain neoplasm malignant [None]
  - Musculoskeletal stiffness [None]
  - Drug effect variable [None]
  - Muscle spasms [None]
  - Condition aggravated [None]
  - Muscle spasticity [None]
